FAERS Safety Report 9413245 (Version 1)
Quarter: 2013Q3

REPORT INFORMATION
  Report Type: Spontaneous
  Country: US (occurrence: None)
  Receive Date: 20130709
  Receipt Date: 20130709
  Transmission Date: 20140515
  Serious: Yes (Hospitalization)
  Sender: FDA-Public Use
  Company Number: 07-AUR-00313

PATIENT
  Age: 78 Year
  Sex: Female

DRUGS (1)
  1. CIPROFLOXACIN (CIPROFLOXACIN) [Suspect]
     Indication: BRONCHITIS
     Dosage: 750 MG 2 IN 1D

REACTIONS (8)
  - Cough [None]
  - Urine output decreased [None]
  - Blood creatinine increased [None]
  - Proteinuria [None]
  - Haematuria [None]
  - Renal tubular disorder [None]
  - Red blood cells urine positive [None]
  - Nephrolithiasis [None]
